FAERS Safety Report 22221737 (Version 1)
Quarter: 2023Q2

REPORT INFORMATION
  Report Type: Report from Study
  Country: CO (occurrence: CO)
  Receive Date: 20230418
  Receipt Date: 20230418
  Transmission Date: 20230722
  Serious: Yes (Other)
  Sender: FDA-Public Use
  Company Number: CO-JNJFOC-20230423147

PATIENT
  Age: 43 Year
  Sex: Female
  Weight: 63 kg

DRUGS (8)
  1. SIMPONI [Suspect]
     Active Substance: GOLIMUMAB
     Indication: Ankylosing spondylitis
     Route: 058
     Dates: start: 20200507, end: 20230316
  2. PREGABALIN [Concomitant]
     Active Substance: PREGABALIN
  3. ACETAMINOPHEN [Concomitant]
     Active Substance: ACETAMINOPHEN
  4. SULFASALAZINE [Concomitant]
     Active Substance: SULFASALAZINE
  5. ETORICOXIB [Concomitant]
     Active Substance: ETORICOXIB
  6. RIFAMPIN [Concomitant]
     Active Substance: RIFAMPIN
  7. ISONIAZID [Concomitant]
     Active Substance: ISONIAZID
  8. PYRAZINAMIDE [Concomitant]
     Active Substance: PYRAZINAMIDE

REACTIONS (1)
  - Latent tuberculosis [Not Recovered/Not Resolved]

NARRATIVE: CASE EVENT DATE: 20230301
